FAERS Safety Report 9352546 (Version 2)
Quarter: 2013Q3

REPORT INFORMATION
  Report Type: Spontaneous
  Country: US (occurrence: US)
  Receive Date: 20130618
  Receipt Date: 20130718
  Transmission Date: 20140515
  Serious: No
  Sender: FDA-Public Use
  Company Number: US-009507513-1305USA018078

PATIENT
  Age: 32 Year
  Sex: Female
  Weight: 79.81 kg

DRUGS (1)
  1. PREGNYL [Suspect]
     Indication: ASSISTED FERTILISATION
     Dosage: DF: 10,000 UNITS, TOTAL DAILY DOSAGE: 5000 UNITS
     Route: 058
     Dates: start: 20130528, end: 20130528

REACTIONS (3)
  - Anovulatory cycle [Recovered/Resolved]
  - Human chorionic gonadotropin negative [Recovered/Resolved]
  - Incorrect route of drug administration [Unknown]
